FAERS Safety Report 18203097 (Version 1)
Quarter: 2020Q3

REPORT INFORMATION
  Report Type: Spontaneous
  Country: CN (occurrence: CN)
  Receive Date: 20200827
  Receipt Date: 20200827
  Transmission Date: 20201103
  Serious: Yes (Hospitalization, Other)
  Sender: FDA-Public Use
  Company Number: CN-BAXTER-2020BAX017705

PATIENT
  Age: 83 Year
  Sex: Male
  Weight: 57 kg

DRUGS (12)
  1. 0.9% SODIUM CHLORIDE INJECTION [Suspect]
     Active Substance: SODIUM CHLORIDE
     Dosage: DOSE RE?INTRODUCED; CYCLOPHOSPHAMIDE + NS
     Route: 041
     Dates: start: 202008
  2. 5% GLUCOSE  INJECTION [Suspect]
     Active Substance: DEXTROSE
     Dosage: DOSE RE?INTRODUCED; 5% GS + PIRARUBICIN HYDROCHLORIDE
     Route: 041
     Dates: start: 202008
  3. VINCRISTINE [Suspect]
     Active Substance: VINCRISTINE
     Dosage: DOSE RE?INTRODUCED; NS + VINCRISTINE SULFATE
     Route: 042
     Dates: start: 202008
  4. PIRARUBICIN [Suspect]
     Active Substance: PIRARUBICIN
     Dosage: DOSE RE?INTRODUCED; 5% GS + PIRARUBICIN HYDROCHLORIDE
     Route: 041
     Dates: start: 202008
  5. VINCRISTINE [Suspect]
     Active Substance: VINCRISTINE
     Indication: DIFFUSE LARGE B-CELL LYMPHOMA
     Dosage: NS 20ML + VINCRISTINE SULFATE 2 MG
     Route: 042
     Dates: start: 20200803, end: 20200803
  6. ENDOXAN [Suspect]
     Active Substance: CYCLOPHOSPHAMIDE
     Dosage: DOSE RE?INTRODUCED; CYCLOPHOSPHAMIDE + NS
     Route: 041
     Dates: start: 202008
  7. 0.9% SODIUM CHLORIDE INJECTION [Suspect]
     Active Substance: SODIUM CHLORIDE
     Dosage: NS 20ML + VINCRISTINE SULFATE 2 MG
     Route: 042
     Dates: start: 20200803, end: 20200803
  8. PIRARUBICIN [Suspect]
     Active Substance: PIRARUBICIN
     Indication: DIFFUSE LARGE B-CELL LYMPHOMA
     Dosage: 5% GS 100 ML + PIRARUBICIN HYDROCHLORIDE 85 MG
     Route: 041
     Dates: start: 20200803, end: 20200803
  9. 0.9% SODIUM CHLORIDE INJECTION [Suspect]
     Active Substance: SODIUM CHLORIDE
     Indication: MEDICATION DILUTION
     Dosage: CYCLOPHOSPHAMIDE 1.2 G + NS 100 ML
     Route: 041
     Dates: start: 20200803, end: 20200803
  10. ENDOXAN [Suspect]
     Active Substance: CYCLOPHOSPHAMIDE
     Indication: DIFFUSE LARGE B-CELL LYMPHOMA
     Dosage: CYCLOPHOSPHAMIDE 1.2 G + NS 100 ML
     Route: 041
     Dates: start: 20200803, end: 20200803
  11. 0.9% SODIUM CHLORIDE INJECTION [Suspect]
     Active Substance: SODIUM CHLORIDE
     Dosage: DOSE RE?INTRODUCED; NS + VINCRISTINE SULFATE
     Route: 042
     Dates: start: 202008
  12. 5% GLUCOSE  INJECTION [Suspect]
     Active Substance: DEXTROSE
     Indication: MEDICATION DILUTION
     Dosage: 5% GS 100ML + PIRARUBICIN HYDROCHLORIDE 85 MG
     Route: 041
     Dates: start: 20200803, end: 20200803

REACTIONS (3)
  - Leukopenia [Recovering/Resolving]
  - Neutrophil count decreased [Recovering/Resolving]
  - Myelosuppression [Recovering/Resolving]

NARRATIVE: CASE EVENT DATE: 20200813
